FAERS Safety Report 22769115 (Version 2)
Quarter: 2023Q4

REPORT INFORMATION
  Report Type: Spontaneous
  Country: BR (occurrence: BR)
  Receive Date: 20230731
  Receipt Date: 20231003
  Transmission Date: 20240110
  Serious: Yes (Hospitalization, Disabling, Other)
  Sender: FDA-Public Use
  Company Number: BR-SA-SAC20230730000034

PATIENT
  Age: 3 Year
  Sex: Male
  Weight: 16 kg

DRUGS (1)
  1. SABRIL [Suspect]
     Active Substance: VIGABATRIN
     Indication: Infantile spasms
     Dosage: 1 G, QD
     Route: 048
     Dates: start: 202005, end: 202305

REACTIONS (12)
  - Hypotonia [Recovered/Resolved with Sequelae]
  - Condition aggravated [Recovered/Resolved with Sequelae]
  - Seizure [Recovering/Resolving]
  - Intellectual disability [Unknown]
  - Partial seizures [Recovered/Resolved with Sequelae]
  - Developmental delay [Unknown]
  - Lethargy [Unknown]
  - Speech disorder developmental [Unknown]
  - Coordination abnormal [Unknown]
  - Sleep disorder [Unknown]
  - Balance disorder [Unknown]
  - Poor quality product administered [Unknown]

NARRATIVE: CASE EVENT DATE: 20221101
